FAERS Safety Report 16332650 (Version 1)
Quarter: 2019Q2

REPORT INFORMATION
  Report Type: Spontaneous
  Country: US (occurrence: US)
  Receive Date: 20190413
  Receipt Date: 20190413
  Transmission Date: 20190711
  Serious: No
  Sender: FDA-Public Use
  Company Number: None

PATIENT
  Age: 61 Year
  Sex: Male

DRUGS (1)
  1. DALFAMPRIDINE 10 MG  ER TAB [Suspect]
     Active Substance: DALFAMPRIDINE
     Route: 058
     Dates: start: 201811, end: 201903

REACTIONS (3)
  - Arthralgia [None]
  - Myalgia [None]
  - Dyspepsia [None]

NARRATIVE: CASE EVENT DATE: 20190413
